FAERS Safety Report 11043665 (Version 1)
Quarter: 2015Q2

REPORT INFORMATION
  Report Type: Spontaneous
  Country: US (occurrence: None)
  Receive Date: 20150416
  Receipt Date: 20150416
  Transmission Date: 20150821
  Serious: No
  Sender: FDA-Public Use
  Company Number: None

PATIENT
  Age: 51 Year
  Sex: Male
  Weight: 88.45 kg

DRUGS (2)
  1. ATORVASTATIN [Suspect]
     Active Substance: ATORVASTATIN
     Indication: BLOOD CHOLESTEROL INCREASED
     Dosage: 1 PILL
     Route: 048
     Dates: start: 20130401, end: 20150410
  2. ASPIRIN. [Concomitant]
     Active Substance: ASPIRIN

REACTIONS (7)
  - Cognitive disorder [None]
  - Paranoia [None]
  - Product substitution issue [None]
  - Dementia [None]
  - Mental impairment [None]
  - Amnesia [None]
  - Confusional state [None]

NARRATIVE: CASE EVENT DATE: 20150415
